FAERS Safety Report 7376950-3 (Version None)
Quarter: 2011Q1

REPORT INFORMATION
  Report Type: 
  Country: None (occurrence: None)
  Receive Date: 20110328
  Receipt Date: 20110317
  Transmission Date: 20110831
  Serious: Yes (Life-Threatening, Hospitalization, Disabling)
  Sender: FDA-Public Use
  Company Number: DE-BIOGENIDEC-2011BI005661

PATIENT
  Age: 42 Year
  Sex: Male

DRUGS (3)
  1. PANTOPRAZOL [Concomitant]
     Indication: PROPHYLAXIS
     Dates: start: 20110101
  2. ASPIRIN [Concomitant]
     Indication: PROPHYLAXIS
     Dates: start: 20110101
  3. TYSABRI [Suspect]
     Indication: RELAPSING-REMITTING MULTIPLE SCLEROSIS
     Route: 042
     Dates: start: 20070501

REACTIONS (2)
  - TRIGEMINAL NEURALGIA [None]
  - PROGRESSIVE MULTIFOCAL LEUKOENCEPHALOPATHY [None]
